FAERS Safety Report 15716972 (Version 1)
Quarter: 2018Q4

REPORT INFORMATION
  Report Type: Spontaneous
  Country: US (occurrence: US)
  Receive Date: 20181129
  Receipt Date: 20181129
  Transmission Date: 20190205
  Serious: No
  Sender: FDA-Public Use
  Company Number: None

PATIENT
  Age: 51 Year
  Sex: Female
  Weight: 169.64 kg

DRUGS (2)
  1. KEFLEX [Suspect]
     Active Substance: CEPHALEXIN
     Indication: PSORIASIS
  2. KEFLEX [Suspect]
     Active Substance: CEPHALEXIN
     Indication: PSORIASIS

REACTIONS (1)
  - Red man syndrome [None]
